FAERS Safety Report 5594910-X (Version None)
Quarter: 2008Q1

REPORT INFORMATION
  Report Type: 
  Country: None (occurrence: None)
  Receive Date: 20080117
  Receipt Date: 20080110
  Transmission Date: 20080703
  Serious: Yes (Hospitalization)
  Sender: FDA-Public Use
  Company Number: PHRM2008FR00560

PATIENT
  Age: 29 Year
  Sex: Female

DRUGS (4)
  1. TEGRETOL [Suspect]
     Indication: PARTIAL SEIZURES
     Dosage: 400 MG, BID
     Route: 048
     Dates: end: 20070401
  2. TEGRETOL [Suspect]
     Dosage: 1200 MG/DAY
     Route: 048
     Dates: start: 20070401
  3. TEGRETOL [Suspect]
     Dosage: 400 MG, BID
     Route: 048
     Dates: start: 20070501
  4. URBANYL [Concomitant]
     Indication: PARTIAL SEIZURES
     Dosage: 15 MG/DAY
     Route: 048

REACTIONS (7)
  - ANTICONVULSANT DRUG LEVEL ABOVE THERAPEUTIC [None]
  - ASTHENIA [None]
  - BALANCE DISORDER [None]
  - DIPLOPIA [None]
  - EPILEPSY [None]
  - MALAISE [None]
  - OVERDOSE [None]
